FAERS Safety Report 7346925 (Version 4)
Quarter: 2020Q3

REPORT INFORMATION
  Report Type: Report from Study
  Country: US (occurrence: US)
  Receive Date: 20100407
  Receipt Date: 20111128
  Transmission Date: 20201104
  Serious: Yes (Hospitalization, Other)
  Sender: FDA-Public Use
  Company Number: US-JNJFOC-20071007209

PATIENT
  Age: 20 Year
  Sex: Male
  Weight: 63.9 kg

DRUGS (14)
  1. HYDROCODONE [Concomitant]
     Active Substance: HYDROCODONE
     Indication: ABDOMINAL PAIN
     Route: 048
     Dates: start: 20070720
  2. GOLIMUMAB [Suspect]
     Active Substance: GOLIMUMAB
     Route: 058
     Dates: start: 20070912
  3. PREDNISONE. [Concomitant]
     Active Substance: PREDNISONE
  4. PHENERGAN [Concomitant]
     Active Substance: PROMETHAZINE HYDROCHLORIDE
     Route: 048
  5. HYDROMORPHONE HYDROCHLORIDE. [Concomitant]
     Active Substance: HYDROMORPHONE HYDROCHLORIDE
  6. GOLIMUMAB [Suspect]
     Active Substance: GOLIMUMAB
     Indication: COLITIS ULCERATIVE
     Route: 058
     Dates: start: 20070926
  7. PERCOCET [Concomitant]
     Active Substance: ACETAMINOPHEN\OXYCODONE HYDROCHLORIDE
  8. MERCAPTOPURINE. [Concomitant]
     Active Substance: MERCAPTOPURINE
     Route: 048
     Dates: start: 20070514
  9. ASACOL [Concomitant]
     Active Substance: MESALAMINE
     Indication: COLITIS ULCERATIVE
     Route: 048
     Dates: start: 20070315
  10. PERCOCET [Concomitant]
     Active Substance: ACETAMINOPHEN\OXYCODONE HYDROCHLORIDE
  11. SULFAMETHOXAZOLE [Concomitant]
     Active Substance: SULFAMETHOXAZOLE
     Dates: start: 200707, end: 20070730
  12. LIALDA [Concomitant]
     Active Substance: MESALAMINE
  13. CANASA [Concomitant]
     Active Substance: MESALAMINE
  14. IMURAN [Concomitant]
     Active Substance: AZATHIOPRINE
     Indication: COLITIS ULCERATIVE
     Route: 048
     Dates: start: 20070515

REACTIONS (14)
  - Cellulitis [Recovered/Resolved]
  - Drug ineffective [None]
  - Arthralgia [None]
  - Back pain [None]
  - Myalgia [None]
  - Condition aggravated [None]
  - Oral candidiasis [None]
  - Colitis ulcerative [Recovered/Resolved]
  - Spinal disorder [None]
  - Haemoglobin decreased [None]
  - Weight decreased [None]
  - Haematocrit decreased [None]
  - Cytomegalovirus colitis [None]
  - Neuralgia [None]

NARRATIVE: CASE EVENT DATE: 20071010
